FAERS Safety Report 18427248 (Version 2)
Quarter: 2020Q4

REPORT INFORMATION
  Report Type: Spontaneous
  Country: DE (occurrence: DE)
  Receive Date: 20201026
  Receipt Date: 20201106
  Transmission Date: 20210114
  Serious: Yes (Other)
  Sender: FDA-Public Use
  Company Number: DE-MYLANLABS-2020M1088574

PATIENT
  Age: 77 Year
  Sex: Male
  Weight: 87 kg

DRUGS (10)
  1. NOVORAPID [Suspect]
     Active Substance: INSULIN ASPART
     Dosage: REDUCED BY 14 IU (APPROXIMATELY 25 PERCENT)
     Dates: start: 201804
  2. CANDESARTAN. [Suspect]
     Active Substance: CANDESARTAN
     Indication: PRODUCT USED FOR UNKNOWN INDICATION
     Dosage: 8 MILLIGRAM, BID
     Route: 048
  3. NOVORAPID [Suspect]
     Active Substance: INSULIN ASPART
     Dosage: REDUCED AGAIN (MEANWHILE ALMOST HALVED)
     Dates: start: 201808
  4. PROTAPHANE [Suspect]
     Active Substance: INSULIN HUMAN
     Dosage: REDUCED BY 8 IU (APPROXIMATELY 20 PERCENT)
     Dates: start: 201804
  5. ACETYLSALICYLIC ACID [Concomitant]
     Active Substance: ASPIRIN
     Dosage: 100 DAILY
  6. NOVORAPID [Suspect]
     Active Substance: INSULIN ASPART
     Indication: TYPE 2 DIABETES MELLITUS
     Dosage: 22-14-18 IU
     Dates: start: 2000
  7. ALLOPURINOL. [Concomitant]
     Active Substance: ALLOPURINOL
     Dosage: 300 TWO TIMES A WEEK
  8. NOVORAPID [Suspect]
     Active Substance: INSULIN ASPART
     Dosage: REDUCED AGAIN
     Dates: start: 201806
  9. PROTAPHANE [Suspect]
     Active Substance: INSULIN HUMAN
     Indication: TYPE 2 DIABETES MELLITUS
     Dosage: PROTAPHANE 48 IU 11:00 P.M
     Dates: start: 2000
  10. PROTAPHANE [Suspect]
     Active Substance: INSULIN HUMAN
     Dosage: IF PROTAPHANE WAS EMPTY: TONJEA 40 INTERNATIONAL UNIT OF PROTAPHANE

REACTIONS (7)
  - Blood glucose fluctuation [Unknown]
  - Injection site erythema [Unknown]
  - Weight decreased [Unknown]
  - Hypoglycaemia [Unknown]
  - Anxiety disorder due to a general medical condition [Unknown]
  - Loss of consciousness [Unknown]
  - Injection site mass [Unknown]
